FAERS Safety Report 20383643 (Version 1)
Quarter: 2022Q1

REPORT INFORMATION
  Report Type: Spontaneous
  Country: US (occurrence: None)
  Receive Date: 20220127
  Receipt Date: 20220127
  Transmission Date: 20220423
  Serious: No
  Sender: FDA-Public Use
  Company Number: None

PATIENT
  Age: 40 Year
  Sex: Female
  Weight: 54 kg

DRUGS (31)
  1. PAXLOVID [Suspect]
     Active Substance: NIRMATRELVIR\RITONAVIR
     Indication: COVID-19
     Dosage: FREQUENCY : TWICE A DAY;  30 TABLETS?
     Route: 048
     Dates: start: 20220119, end: 20220125
  2. PAXLOVID [Suspect]
     Active Substance: NIRMATRELVIR\RITONAVIR
     Indication: Immunodeficiency
  3. AZELASTINE [Concomitant]
  4. BUDESONIDE [Concomitant]
  5. CEQUA [Concomitant]
  6. CETIRIZINE [Concomitant]
  7. EMGALITY [Concomitant]
  8. GABAPETIN [Concomitant]
  9. HYDROXYCHLOROQUINE [Concomitant]
  10. IPRATOPIUM   BROMIDE [Concomitant]
  11. KETOCONAZOLE [Concomitant]
  12. NORTTRPTYLINE [Concomitant]
  13. NORTTRPTYLINE [Concomitant]
  14. NORTTRPTYLINE [Concomitant]
  15. NORTTRPTYLINE [Concomitant]
  16. PREVIDENT [Concomitant]
  17. RITUXIMAB [Concomitant]
  18. TRULANCE [Concomitant]
     Active Substance: PLECANATIDE
  19. CBD OIL [Concomitant]
  20. IBEROGAST [Concomitant]
  21. MAGNESIUM [Concomitant]
  22. B150 [Concomitant]
  23. B12 [Concomitant]
  24. MUNICEX [Concomitant]
  25. MURO [Concomitant]
  26. PROBIOTIC [Concomitant]
  27. REFRESH CELLUVISC [Concomitant]
  28. SALINE [Concomitant]
  29. MULTIVITAMIN  D13 [Concomitant]
  30. SALT STICK [Concomitant]
  31. ZINC [Concomitant]

REACTIONS (1)
  - Dysgeusia [None]

NARRATIVE: CASE EVENT DATE: 20220120
